FAERS Safety Report 19964165 (Version 1)
Quarter: 2021Q4

REPORT INFORMATION
  Report Type: Report from Study
  Country: RO (occurrence: RO)
  Receive Date: 20211018
  Receipt Date: 20211018
  Transmission Date: 20220303
  Serious: Yes (Hospitalization)
  Sender: FDA-Public Use
  Company Number: RO-RECORDATI-2021001142

PATIENT

DRUGS (4)
  1. PASIREOTIDE [Suspect]
     Active Substance: PASIREOTIDE
     Indication: Pituitary-dependent Cushing^s syndrome
     Dosage: 0.6 MILLIGRAM
     Route: 058
     Dates: start: 20191018, end: 20210302
  2. MEGUAN [Concomitant]
     Indication: Diabetes mellitus
     Dosage: 1000 MILLIGRAM, BID
     Dates: start: 20191108
  3. GLUCOBAY [Concomitant]
     Active Substance: ACARBOSE
     Indication: Diabetes mellitus
     Dosage: 3X50 MILLIGRAM
     Dates: start: 20191108
  4. TOUJEO [Concomitant]
     Active Substance: INSULIN GLARGINE
     Indication: Diabetes mellitus
     Dosage: 20 IU
     Dates: start: 20201003, end: 20210302

REACTIONS (1)
  - Hyperglycaemia [Recovered/Resolved]

NARRATIVE: CASE EVENT DATE: 20210302
